FAERS Safety Report 6321209-6 (Version None)
Quarter: 2009Q3

REPORT INFORMATION
  Report Type: 
  Country: None (occurrence: None)
  Receive Date: 20090822
  Receipt Date: 20090102
  Transmission Date: 20100115
  Serious: No
  Sender: FDA-Public Use
  Company Number: US-ABBOTT-09P-163-0495808-00

PATIENT
  Sex: Female
  Weight: 58.112 kg

DRUGS (3)
  1. NIASPAN [Suspect]
     Indication: BLOOD CHOLESTEROL ABNORMAL
     Dates: start: 20081230, end: 20090102
  2. BIETTA [Concomitant]
     Indication: DIABETES MELLITUS
  3. ACTOPLUS MET [Concomitant]
     Indication: DIABETES MELLITUS

REACTIONS (1)
  - BLOOD GLUCOSE INCREASED [None]
